FAERS Safety Report 25016068 (Version 3)
Quarter: 2025Q4

REPORT INFORMATION
  Report Type: Spontaneous
  Country: JP (occurrence: JP)
  Receive Date: 20250227
  Receipt Date: 20251101
  Transmission Date: 20260117
  Serious: Yes (Death, Hospitalization)
  Sender: RECORDATI
  Company Number: JP-RECORDATI RARE DISEASE INC.-2025001070

PATIENT
  Age: 0 Year
  Sex: Female
  Weight: 12.6 kg

DRUGS (2)
  1. CARBAGLU [Suspect]
     Active Substance: CARGLUMIC ACID
     Indication: Hyperammonaemia
     Dosage: 600 MG, DAILY, (IN BID)
     Dates: start: 20210222, end: 20240924
  2. CARBAGLU [Suspect]
     Active Substance: CARGLUMIC ACID
     Indication: Methylmalonic acidaemia

REACTIONS (5)
  - Metabolic disorder [Fatal]
  - Infection [Unknown]
  - Tachycardia [Unknown]
  - Vomiting [Unknown]
  - Off label use [Recovered/Resolved]

NARRATIVE: CASE EVENT DATE: 20210222
